FAERS Safety Report 9668244 (Version 1)
Quarter: 2013Q4

REPORT INFORMATION
  Report Type: Report from Study
  Country: JP (occurrence: JP)
  Receive Date: 20131104
  Receipt Date: 20131104
  Transmission Date: 20140711
  Serious: Yes (Hospitalization)
  Sender: FDA-Public Use
  Company Number: JP-TAKEDA-2013TJP002360

PATIENT
  Age: 70 Year
  Sex: Male
  Weight: 74 kg

DRUGS (9)
  1. LANSOPRAZOLE [Suspect]
     Indication: PROPHYLAXIS AGAINST GASTROINTESTINAL ULCER
     Dosage: 15 MG, QD
     Route: 048
     Dates: start: 20120925
  2. BAYASPIRIN [Concomitant]
     Indication: THROMBOSIS PROPHYLAXIS
     Dosage: 100 MG,1 DAYS
     Route: 048
  3. CONIEL [Concomitant]
     Dosage: 4 MG, 1 DAYS
     Route: 048
  4. PLAVIX [Concomitant]
     Indication: ANGINA PECTORIS
     Dosage: 75 MG,1 DAYS
     Route: 048
  5. LIPITOR [Concomitant]
     Dosage: 10 MG,1 DAYS
     Route: 048
  6. MAGLAX [Concomitant]
     Dosage: 1500 MG, 1 DAYS
     Route: 048
  7. FLOMOX [Concomitant]
     Dosage: 300 MG,1 DAYS
     Route: 048
     Dates: start: 20121029
  8. MEIACT [Concomitant]
     Dosage: 300 MG, 1 DAYS
     Route: 048
     Dates: start: 20121106
  9. MINOMYCIN [Concomitant]
     Dosage: 200 MG, 1 DAYS
     Route: 048
     Dates: start: 20121130

REACTIONS (1)
  - Appendicitis [Recovering/Resolving]
